FAERS Safety Report 8024935-6 (Version None)
Quarter: 2012Q1

REPORT INFORMATION
  Report Type: 
  Country: None (occurrence: None)
  Receive Date: 20120103
  Receipt Date: 20111221
  Transmission Date: 20120608
  Serious: Yes (Hospitalization)
  Sender: FDA-Public Use
  Company Number: 2011SP059569

PATIENT
  Age: 70 Year
  Sex: Male

DRUGS (8)
  1. DOMPERIDONE [Concomitant]
  2. LANSOPRAZOLE [Concomitant]
  3. OXAZOLAM [Concomitant]
  4. AMICALIQ (AMICALIQ /01208801/) [Suspect]
     Indication: PRODUCT USED FOR UNKNOWN INDICATION
     Dosage: IV
     Route: 042
     Dates: start: 20110920
  5. ROSUVASTATIN CALCIUM [Concomitant]
  6. MIRTAZAPINE [Suspect]
     Indication: DEPENDENCE
     Dosage: 15 MG;QD;PO 30 MG;QD;PO 15 MG;QD;PO
     Route: 048
     Dates: end: 20110922
  7. MIRTAZAPINE [Suspect]
     Indication: DEPENDENCE
     Dosage: 15 MG;QD;PO 30 MG;QD;PO 15 MG;QD;PO
     Route: 048
     Dates: start: 20100804
  8. ENZYME [Concomitant]

REACTIONS (9)
  - BURNING SENSATION [None]
  - LIVER DISORDER [None]
  - TOXIC SKIN ERUPTION [None]
  - ECZEMA [None]
  - ERYTHEMA [None]
  - HEPATIC FUNCTION ABNORMAL [None]
  - HYPERSENSITIVITY [None]
  - ASTHENIA [None]
  - HEPATIC ENZYME INCREASED [None]
